FAERS Safety Report 6520020-0 (Version None)
Quarter: 2009Q4

REPORT INFORMATION
  Report Type: 
  Country: None (occurrence: None)
  Receive Date: 20091229
  Receipt Date: 20091209
  Transmission Date: 20100525
  Serious: No
  Sender: FDA-Public Use
  Company Number: JP-ROCHE-675559

PATIENT
  Age: 5 Year
  Sex: Male

DRUGS (2)
  1. TAMIFLU [Suspect]
     Indication: DRUG USE FOR UNKNOWN INDICATION
     Route: 048
     Dates: start: 20091206, end: 20091206
  2. TAMIFLU [Suspect]
     Route: 048
     Dates: start: 20091207, end: 20091208

REACTIONS (3)
  - ABNORMAL BEHAVIOUR [None]
  - ACCIDENTAL OVERDOSE [None]
  - DIARRHOEA [None]
